FAERS Safety Report 4453792-X (Version None)
Quarter: 2004Q3

REPORT INFORMATION
  Report Type: 
  Country: None (occurrence: None)
  Receive Date: 20040902
  Receipt Date: 20040618
  Transmission Date: 20050211
  Serious: No
  Sender: FDA-Public Use
  Company Number: 200418437BWH

PATIENT
  Age: 69 Year
  Sex: Male

DRUGS (11)
  1. LEVITRA [Suspect]
     Indication: ERECTILE DYSFUNCTION
     Dosage: 10 MG, TOTAL DAILY, ORAL
     Route: 048
     Dates: start: 20040618
  2. PROSCAR [Concomitant]
  3. SINGULAIR [Concomitant]
  4. LIPITOR [Concomitant]
  5. ALLOPURINOL [Concomitant]
  6. AVANDIA [Concomitant]
  7. DETROL [Concomitant]
  8. METHOCARBAMOL [Concomitant]
  9. QUININE SULFATE [Concomitant]
  10. IBUPROFEN [Concomitant]
  11. VIAGRA [Concomitant]

REACTIONS (3)
  - DIZZINESS [None]
  - ERECTILE DYSFUNCTION [None]
  - HEADACHE [None]
